FAERS Safety Report 10910259 (Version 1)
Quarter: 2015Q1

REPORT INFORMATION
  Report Type: Spontaneous
  Country: US (occurrence: US)
  Receive Date: 20150312
  Receipt Date: 20150312
  Transmission Date: 20150721
  Serious: No
  Sender: FDA-Public Use
  Company Number: US-SA-2014SA150812

PATIENT
  Age: 57 Year
  Sex: Male

DRUGS (1)
  1. NASACORT ALLERGY 24HR [Suspect]
     Active Substance: TRIAMCINOLONE ACETONIDE
     Indication: MULTIPLE ALLERGIES
     Dosage: 55 MCG - ONE SPRAY IN EACH NOSTRIL TAKEN FROM- 2 DAYS AGO
     Route: 065
     Dates: start: 201410

REACTIONS (1)
  - Extra dose administered [Unknown]
